FAERS Safety Report 4442266-8 (Version None)
Quarter: 2004Q3

REPORT INFORMATION
  Report Type: 
  Country: None (occurrence: None)
  Receive Date: 20040903
  Receipt Date: 20040716
  Transmission Date: 20050211
  Serious: Yes (Other)
  Sender: FDA-Public Use
  Company Number: 2004UW14788

PATIENT
  Age: 79 Year
  Sex: Female
  Weight: 67.586 kg

DRUGS (7)
  1. CRESTOR [Suspect]
     Indication: BLOOD CHOLESTEROL INCREASED
     Dosage: 10 MG QOD PO
     Route: 048
     Dates: start: 20040401
  2. DIOVAN HCT [Concomitant]
  3. DETROL [Concomitant]
  4. LEVOTHYROXINE SODIUM [Concomitant]
  5. NEXIUM [Concomitant]
  6. ACETYLSALICYLIC ACID [Concomitant]
  7. MULTIVITAMIN [Concomitant]

REACTIONS (1)
  - HAIR DISORDER [None]
